FAERS Safety Report 12193827 (Version 1)
Quarter: 2016Q1

REPORT INFORMATION
  Report Type: Spontaneous
  Country: DK (occurrence: DK)
  Receive Date: 20160321
  Receipt Date: 20160321
  Transmission Date: 20160526
  Serious: Yes (Hospitalization)
  Sender: FDA-Public Use
  Company Number: DK-AUROBINDO-AUR-APL-2016-03580

PATIENT
  Age: 39 Year
  Sex: Male

DRUGS (1)
  1. SUMATRIPTAN TABLETS 50 MG [Suspect]
     Active Substance: SUMATRIPTAN SUCCINATE
     Indication: MIGRAINE
     Dosage: 50 MG, TWO TIMES A DAY
     Route: 065

REACTIONS (6)
  - Overdose [Unknown]
  - Asthenia [Unknown]
  - Weight decreased [Unknown]
  - Pain [Unknown]
  - Nerve injury [Unknown]
  - Neuropathy peripheral [Unknown]

NARRATIVE: CASE EVENT DATE: 201411
